FAERS Safety Report 6643996-X (Version None)
Quarter: 2010Q1

REPORT INFORMATION
  Report Type: 
  Country: None (occurrence: None)
  Receive Date: 20100304
  Receipt Date: 20091102
  Transmission Date: 20100710
  Serious: Yes (Other)
  Sender: FDA-Public Use
  Company Number: 20091102CINRY1234

PATIENT
  Age: 17 Year
  Sex: Male

DRUGS (4)
  1. CINRYZE [Suspect]
     Indication: HEREDITARY ANGIOEDEMA
     Dosage: (1000 UNIT, EVERY MONDAY, WEDNESDAY AND FRIDAY), INTRAVENOUS
     Route: 042
     Dates: start: 20090601, end: 20090701
  2. CINRYZE [Suspect]
     Indication: PROPHYLAXIS
     Dosage: (1000 UNIT, EVERY MONDAY, WEDNESDAY AND FRIDAY), INTRAVENOUS
     Route: 042
     Dates: start: 20090601, end: 20090701
  3. DANAZOL [Suspect]
     Indication: DRUG USE FOR UNKNOWN INDICATION
     Dosage: (1000 UNIT, EVERY MONDAY, WEDNESDAY AND FRIDAY), INTRAVENOUS
     Route: 042
     Dates: start: 20060101, end: 20091001
  4. DANAZOL [Suspect]
     Indication: DRUG USE FOR UNKNOWN INDICATION
     Dosage: (1000 UNIT, EVERY MONDAY, WEDNESDAY AND FRIDAY), INTRAVENOUS
     Route: 042
     Dates: start: 20090801

REACTIONS (3)
  - HEART RATE INCREASED [None]
  - HEREDITARY ANGIOEDEMA [None]
  - INAPPROPRIATE SCHEDULE OF DRUG ADMINISTRATION [None]
